FAERS Safety Report 14814774 (Version 2)
Quarter: 2018Q2

REPORT INFORMATION
  Report Type: Spontaneous
  Country: US (occurrence: US)
  Receive Date: 20180426
  Receipt Date: 20180507
  Transmission Date: 20180711
  Serious: Yes (Life-Threatening, Hospitalization, Other)
  Sender: FDA-Public Use
  Company Number: US-AUROBINDO-AUR-APL-2018-021145

PATIENT
  Age: 36 Year
  Sex: Male

DRUGS (1)
  1. LOPERAMIDE [Suspect]
     Active Substance: LOPERAMIDE
     Indication: WITHDRAWAL SYNDROME
     Dosage: FOR APPROXIMATELY 1 YEAR
     Route: 048

REACTIONS (3)
  - Cardiotoxicity [Recovering/Resolving]
  - Torsade de pointes [Recovering/Resolving]
  - Ventricular tachycardia [Recovering/Resolving]
